FAERS Safety Report 13444777 (Version 4)
Quarter: 2017Q4

REPORT INFORMATION
  Report Type: Spontaneous
  Country: US (occurrence: US)
  Receive Date: 20170414
  Receipt Date: 20171229
  Transmission Date: 20180320
  Serious: Yes (Death)
  Sender: FDA-Public Use
  Company Number: US-PFIZER INC-2017163480

PATIENT
  Age: 21 Year
  Sex: Female

DRUGS (2)
  1. MIFEPREX [Suspect]
     Active Substance: MIFEPRISTONE
     Indication: ABORTION INDUCED
     Dosage: 200 MG, UNK
     Route: 048
  2. MISOPROSTOL. [Suspect]
     Active Substance: MISOPROSTOL
     Indication: ABORTION INDUCED
     Dosage: 800 UG, UNK
     Route: 067

REACTIONS (3)
  - Endometritis [Fatal]
  - Product use in unapproved indication [Fatal]
  - Toxic shock syndrome [Fatal]
